FAERS Safety Report 5953243-X (Version None)
Quarter: 2008Q4

REPORT INFORMATION
  Report Type: 
  Country: None (occurrence: None)
  Receive Date: 20081114
  Receipt Date: 20081104
  Transmission Date: 20090506
  Serious: Yes (Other)
  Sender: FDA-Public Use
  Company Number: US-ROCHE-595474

PATIENT
  Sex: Male

DRUGS (2)
  1. PEG-INTERFERON A-2A (RO 25-8310) [Suspect]
     Dosage: FORM: PFS
     Route: 065
     Dates: start: 20080907, end: 20081026
  2. RIBAVIRIN [Suspect]
     Route: 065
     Dates: start: 20080907, end: 20081026

REACTIONS (2)
  - DIVERTICULITIS [None]
  - PNEUMATOSIS [None]
